FAERS Safety Report 5861777-1 (Version None)
Quarter: 2008Q3

REPORT INFORMATION
  Report Type: 
  Country: None (occurrence: None)
  Receive Date: 20080827
  Receipt Date: 20080710
  Transmission Date: 20090109
  Serious: No
  Sender: FDA-Public Use
  Company Number: US-ABBOTT-08P-163-0461890-00

PATIENT
  Sex: Male
  Weight: 93.07 kg

DRUGS (6)
  1. COATED PDS [Suspect]
     Indication: HIGH DENSITY LIPOPROTEIN DECREASED
     Route: 048
     Dates: start: 20080501, end: 20080601
  2. GLIBOMET [Concomitant]
     Indication: DRUG USE FOR UNKNOWN INDICATION
     Route: 048
  3. BLOOD PRESSURE MEDICATIONS [Concomitant]
     Indication: HYPERTENSION
     Route: 048
  4. ADVICOR [Concomitant]
     Indication: BLOOD CHOLESTEROL
     Route: 048
  5. EZETIMIBE [Concomitant]
     Indication: BLOOD CHOLESTEROL
     Route: 048
  6. POTASSIUM CHLORIDE [Concomitant]
     Indication: DRUG USE FOR UNKNOWN INDICATION
     Route: 048

REACTIONS (1)
  - BLOOD GLUCOSE INCREASED [None]
